FAERS Safety Report 9368702 (Version 2)
Quarter: 2013Q3

REPORT INFORMATION
  Report Type: Spontaneous
  Country: JP (occurrence: JP)
  Receive Date: 20130626
  Receipt Date: 20130718
  Transmission Date: 20140515
  Serious: No
  Sender: FDA-Public Use
  Company Number: JP-ASTRAZENECA-2013SE47513

PATIENT
  Age: 25256 Day
  Sex: Male
  Weight: 78 kg

DRUGS (7)
  1. CRESTOR [Suspect]
     Indication: DYSLIPIDAEMIA
     Route: 048
     Dates: start: 20130316, end: 20130612
  2. HARNAL D [Concomitant]
     Indication: BENIGN PROSTATIC HYPERPLASIA
     Route: 048
     Dates: start: 20130316
  3. COMESGEN [Concomitant]
     Indication: LUMBAR SPINAL STENOSIS
     Route: 048
     Dates: start: 20130208
  4. SHAKUYAKUKANZOTO [Concomitant]
     Indication: LUMBAR SPINAL STENOSIS
     Route: 048
     Dates: start: 20130208, end: 20130612
  5. SYMBICORT TURBUHALER [Concomitant]
     Indication: EMPHYSEMA
     Dosage: 60 DOSES, 2 DF BID
     Route: 055
     Dates: start: 20130218, end: 20130612
  6. KIPRES [Concomitant]
     Indication: EMPHYSEMA
     Route: 048
     Dates: start: 20130218
  7. KIPRES [Concomitant]
     Indication: EMPHYSEMA
     Route: 048
     Dates: start: 20130316, end: 20130612

REACTIONS (2)
  - Interstitial lung disease [Recovering/Resolving]
  - Cough [Recovering/Resolving]
